FAERS Safety Report 8338340-6 (Version None)
Quarter: 2012Q2

REPORT INFORMATION
  Report Type: 
  Country: None (occurrence: None)
  Receive Date: 20120504
  Receipt Date: 20120424
  Transmission Date: 20120825
  Serious: Yes (Life-Threatening, Hospitalization, Other)
  Sender: FDA-Public Use
  Company Number: US-PFIZER INC-2012108840

PATIENT
  Sex: Female
  Weight: 74.8 kg

DRUGS (6)
  1. SOLU-MEDROL [Suspect]
     Dosage: 125 MG, UNK
     Route: 042
     Dates: start: 20111017, end: 20111018
  2. WELLBUTRIN [Concomitant]
  3. NEURONTIN [Concomitant]
  4. XANAX [Concomitant]
  5. CARDIZEM [Concomitant]
  6. LORTAB [Concomitant]

REACTIONS (15)
  - CARDIOMEGALY [None]
  - DYSPNOEA [None]
  - OROPHARYNGEAL PAIN [None]
  - PNEUMONIA [None]
  - STAPHYLOCOCCAL BACTERAEMIA [None]
  - INTERSTITIAL LUNG DISEASE [None]
  - ANXIETY [None]
  - ABDOMINAL PAIN [None]
  - HYPERSENSITIVITY [None]
  - ANAEMIA [None]
  - BACK PAIN [None]
  - HEADACHE [None]
  - CHEST PAIN [None]
  - NAUSEA [None]
  - HYPERGLYCAEMIA [None]
